FAERS Safety Report 5204976-4 (Version None)
Quarter: 2006Q4

REPORT INFORMATION
  Report Type: 
  Country: None (occurrence: None)
  Receive Date: 20061027
  Receipt Date: 20060511
  Transmission Date: 20070319
  Serious: Yes (Other)
  Sender: FDA-Public Use
  Company Number: HQWYE335912MAY06

PATIENT
  Age: 75 Year
  Sex: Female
  Weight: 69.01 kg

DRUGS (2)
  1. PREMARIN [Suspect]
     Indication: MENOPAUSAL SYMPTOMS
     Dosage: 0.625 MG 1X PER 1 DAY, ORAL
     Route: 048
     Dates: start: 19880101, end: 19920101
  2. SYNTHROID [Concomitant]

REACTIONS (1)
  - BREAST CANCER [None]
